FAERS Safety Report 8344401-8 (Version None)
Quarter: 2012Q2

REPORT INFORMATION
  Report Type: 
  Country: None (occurrence: None)
  Receive Date: 20120508
  Receipt Date: 20120427
  Transmission Date: 20120825
  Serious: Yes (Other)
  Sender: FDA-Public Use
  Company Number: GB-TEVA-335198ISR

PATIENT
  Age: 33 Year
  Sex: Male
  Weight: 66 kg

DRUGS (3)
  1. GABAPENTIN [Suspect]
     Route: 048
  2. HEROIN [Concomitant]
  3. METHADONE HCL [Concomitant]
     Dosage: ONGOING
     Route: 048
     Dates: start: 20100101

REACTIONS (1)
  - DRUG ABUSE [None]
